FAERS Safety Report 7807465-3 (Version None)
Quarter: 2011Q4

REPORT INFORMATION
  Report Type: 
  Country: None (occurrence: None)
  Receive Date: 20111011
  Receipt Date: 20111004
  Transmission Date: 20120403
  Serious: Yes (Other)
  Sender: FDA-Public Use
  Company Number: PHEH2011US00850

PATIENT
  Sex: Female
  Weight: 64.853 kg

DRUGS (5)
  1. GILENYA [Suspect]
     Indication: MULTIPLE SCLEROSIS
     Dosage: 0.5 MG, QD
     Route: 048
     Dates: start: 20110401
  2. MULTI-VITAMIN [Concomitant]
     Dosage: UNK UKN, UNK
     Route: 048
  3. VITAMIN D [Concomitant]
     Dosage: 5000 IU, UNK
     Route: 048
  4. LEVOXYL [Concomitant]
     Dosage: 125 MG, DAILY
     Route: 048
  5. CALCIUM CARBONATE [Concomitant]
     Dosage: 600 MG, UNK
     Route: 048

REACTIONS (1)
  - BLOOD THYROID STIMULATING HORMONE INCREASED [None]
